FAERS Safety Report 7698603-4 (Version None)
Quarter: 2011Q3

REPORT INFORMATION
  Report Type: 
  Country: None (occurrence: None)
  Receive Date: 20110818
  Receipt Date: 20110818
  Transmission Date: 20111222
  Serious: Yes (Hospitalization)
  Sender: FDA-Public Use
  Company Number: None

PATIENT
  Sex: Female
  Weight: 63 kg

DRUGS (4)
  1. NEULASTA [Suspect]
     Dosage: 6 MG
  2. CISPLATIN [Suspect]
     Dosage: 82 MG
  3. DOXORUBICIN HYDROCHLORIDE [Suspect]
     Dosage: 73 MG
  4. PACLITAXEL [Suspect]
     Dosage: 261 MG

REACTIONS (2)
  - BLOOD POTASSIUM DECREASED [None]
  - ABDOMINAL PAIN [None]
